FAERS Safety Report 5931737-0 (Version None)
Quarter: 2008Q4

REPORT INFORMATION
  Report Type: 
  Country: None (occurrence: None)
  Receive Date: 20081027
  Receipt Date: 20081015
  Transmission Date: 20090506
  Serious: Yes (Hospitalization, Other)
  Sender: FDA-Public Use
  Company Number: FR-ROCHE-593242

PATIENT
  Age: 24 Year

DRUGS (8)
  1. MYCOPHENOLATE MOFETIL [Suspect]
     Dosage: MINIMUM TARGET OF 2G PER DAY
     Route: 065
  2. RITUXIMAB [Suspect]
     Indication: HEART TRANSPLANT REJECTION
     Dosage: INFUSION. AT A RATE OF 50MG/HOUR. AFTER 30 MINUTES.
     Route: 065
  3. CYCLOSPORINE [Suspect]
     Route: 065
  4. CYCLOSPORINE [Suspect]
     Route: 065
  5. HYDROXYZINE [Concomitant]
  6. ACETAMINOPHEN [Concomitant]
  7. METHYLPREDNISOLONE 16MG TAB [Concomitant]
  8. HYDROCORTISONE [Concomitant]

REACTIONS (6)
  - DIASTOLIC DYSFUNCTION [None]
  - DRUG INEFFECTIVE [None]
  - DYSPEPSIA [None]
  - DYSPNOEA [None]
  - EJECTION FRACTION DECREASED [None]
  - HEART TRANSPLANT REJECTION [None]
